FAERS Safety Report 5198929-2 (Version None)
Quarter: 2006Q4

REPORT INFORMATION
  Report Type: 
  Country: None (occurrence: None)
  Receive Date: 20060921
  Receipt Date: 20060622
  Transmission Date: 20070319
  Serious: Yes (Other)
  Sender: FDA-Public Use
  Company Number: 2006014886

PATIENT
  Age: 62 Year
  Sex: Male
  Weight: 62.1428 kg

DRUGS (1)
  1. DILANTIN [Suspect]
     Indication: ILL-DEFINED DISORDER
     Dates: end: 20030129

REACTIONS (1)
  - TOXIC EPIDERMAL NECROLYSIS [None]
